FAERS Safety Report 10045420 (Version 2)
Quarter: 2014Q2

REPORT INFORMATION
  Report Type: Spontaneous
  Country: US (occurrence: US)
  Receive Date: 20140328
  Receipt Date: 20140410
  Transmission Date: 20141212
  Serious: Yes (Death, Hospitalization)
  Sender: FDA-Public Use
  Company Number: US-AMGEN-USASP2014021164

PATIENT
  Age: 86 Year
  Sex: Female
  Weight: 70.3 kg

DRUGS (1)
  1. PROLIA [Suspect]
     Indication: SENILE OSTEOPOROSIS
     Dosage: 60 MG, Q6MO
     Route: 058
     Dates: start: 20120928

REACTIONS (2)
  - Death [Fatal]
  - Malaise [Unknown]
